FAERS Safety Report 18387589 (Version 1)
Quarter: 2020Q4

REPORT INFORMATION
  Report Type: Report from Study
  Country: US (occurrence: US)
  Receive Date: 20201015
  Receipt Date: 20201015
  Transmission Date: 20210114
  Serious: No
  Sender: FDA-Public Use
  Company Number: NVSC2020US270835

PATIENT
  Age: 11 Year
  Sex: Male

DRUGS (1)
  1. ILARIS [Suspect]
     Active Substance: CANAKINUMAB
     Indication: STILL^S DISEASE
     Dosage: 136 MG, EVERY 4 WEEKS
     Route: 058
     Dates: start: 20200609

REACTIONS (1)
  - Illness [Unknown]

NARRATIVE: CASE EVENT DATE: 20201001
